FAERS Safety Report 10790666 (Version 3)
Quarter: 2015Q3

REPORT INFORMATION
  Report Type: Spontaneous
  Country: FR (occurrence: FR)
  Receive Date: 20150212
  Receipt Date: 20150810
  Transmission Date: 20151125
  Serious: Yes (Life-Threatening, Hospitalization, Other)
  Sender: FDA-Public Use
  Company Number: FR-PFIZER INC-2015051192

PATIENT
  Age: 15 Year
  Sex: Female

DRUGS (5)
  1. XEROQUEL LP [Suspect]
     Active Substance: QUETIAPINE FUMARATE
     Dosage: 100 MG, SINGLE
     Route: 048
     Dates: start: 20141104, end: 20141104
  2. XEROQUEL LP [Suspect]
     Active Substance: QUETIAPINE FUMARATE
     Dosage: 100 MG, DAILY
     Route: 048
     Dates: end: 2014
  3. PARACETAMOL [Suspect]
     Active Substance: ACETAMINOPHEN
     Dosage: 1500 MG, SINGLE
     Route: 048
     Dates: start: 20141104, end: 20141104
  4. XANAX [Suspect]
     Active Substance: ALPRAZOLAM
     Dosage: 0.25 MG, DAILY
     Route: 048
     Dates: end: 2014
  5. XANAX [Suspect]
     Active Substance: ALPRAZOLAM
     Dosage: 1.75 MG, SINGLE
     Route: 048
     Dates: start: 20141104, end: 20141104

REACTIONS (10)
  - Generalised tonic-clonic seizure [Unknown]
  - Hyperventilation [Unknown]
  - Anxiety [Unknown]
  - Suicide attempt [Recovered/Resolved]
  - Epilepsy [Unknown]
  - Cerebellar syndrome [Unknown]
  - Toxicity to various agents [Recovered/Resolved]
  - Claustrophobia [Unknown]
  - Coma [Recovered/Resolved]
  - Agoraphobia [Unknown]

NARRATIVE: CASE EVENT DATE: 20141104
